FAERS Safety Report 4547997-7 (Version None)
Quarter: 2004Q4

REPORT INFORMATION
  Report Type: 
  Country: None (occurrence: None)
  Receive Date: 20041227
  Receipt Date: 20040920
  Transmission Date: 20050328
  Serious: No
  Sender: FDA-Public Use
  Company Number: 04P-163-0273966-00

PATIENT
  Age: 51 Year
  Sex: Female
  Weight: 60.782 kg

DRUGS (8)
  1. HUMIRA [Suspect]
     Indication: RHEUMATOID ARTHRITIS
     Dosage: 40 MG, 1 IN 2 WK, SUBCUTANEOUS
     Route: 058
     Dates: start: 20040814
  2. DICYCLOMINE HCL [Concomitant]
  3. METOCLOPRAMIDE [Concomitant]
  4. CLARINEX [Concomitant]
  5. LANSOPRAZOLE [Concomitant]
  6. ZOLPIDEM TARTRATE [Concomitant]
  7. PROPACET 100 [Concomitant]
  8. LORAZEPAM [Concomitant]

REACTIONS (1)
  - GASTRITIS [None]
